FAERS Safety Report 6581162-7 (Version None)
Quarter: 2010Q1

REPORT INFORMATION
  Report Type: 
  Country: None (occurrence: None)
  Receive Date: 20100215
  Receipt Date: 20100204
  Transmission Date: 20100710
  Serious: Yes (Hospitalization, Other)
  Sender: FDA-Public Use
  Company Number: FR-AMGEN-QUU368308

PATIENT
  Sex: Female
  Weight: 96 kg

DRUGS (9)
  1. NEULASTA [Suspect]
     Indication: CHEMOTHERAPY
     Route: 065
  2. NEUPOGEN [Suspect]
     Indication: CHEMOTHERAPY
     Route: 058
     Dates: start: 20090912
  3. TAXOL [Concomitant]
  4. CISPLATIN [Concomitant]
     Route: 042
     Dates: start: 20090908
  5. 5-FU [Concomitant]
     Route: 042
     Dates: start: 20090908, end: 20090911
  6. ZOPHREN [Concomitant]
  7. PRIMPERAN TAB [Concomitant]
  8. SOLUPRED [Concomitant]
  9. POLARAMINE [Concomitant]
     Dates: start: 20090914

REACTIONS (10)
  - ANGIOEDEMA [None]
  - BALANCE DISORDER [None]
  - DRUG HYPERSENSITIVITY [None]
  - ELECTROENCEPHALOGRAM ABNORMAL [None]
  - OEDEMA [None]
  - PLATELET COUNT INCREASED [None]
  - SKIN TEST POSITIVE [None]
  - SYNCOPE [None]
  - URINARY INCONTINENCE [None]
  - WHITE BLOOD CELL COUNT INCREASED [None]
